FAERS Safety Report 8186421-2 (Version None)
Quarter: 2012Q1

REPORT INFORMATION
  Report Type: 
  Country: None (occurrence: None)
  Receive Date: 20120306
  Receipt Date: 20120302
  Transmission Date: 20120608
  Serious: Yes (Other)
  Sender: FDA-Public Use
  Company Number: ES-SHIRE-SPV1-2012-00234

PATIENT
  Age: 74 Year
  Sex: Female

DRUGS (7)
  1. LEVOTIROXINA [Concomitant]
     Indication: HYPOTHYROIDISM
     Dosage: 25 ?G, 1X/DAY:QD
     Route: 048
     Dates: start: 20080801
  2. AMLODIPINE BESYLATE [Concomitant]
     Indication: HYPERTENSION
     Dosage: 10 MG, 2X/DAY:BID
     Route: 048
     Dates: start: 20080801
  3. ALLOPURINOL [Concomitant]
     Indication: PRODUCT USED FOR UNKNOWN INDICATION
     Dosage: 100 MG, 1X/DAY:QD
     Dates: start: 20080801
  4. DOXAZOSIN MESYLATE [Concomitant]
     Indication: PRODUCT USED FOR UNKNOWN INDICATION
     Dosage: 4 MG, 1X/DAY:QD
     Route: 048
     Dates: start: 20080801
  5. ROCALTROL [Concomitant]
     Indication: PRODUCT USED FOR UNKNOWN INDICATION
     Dosage: 0.25 ?G, 1X/DAY:QD
     Route: 048
     Dates: start: 20080801
  6. FOSRENOL [Suspect]
     Indication: RENAL FAILURE CHRONIC
     Dosage: 1000 MG, 3X/DAY:TID
     Route: 048
     Dates: start: 20111107, end: 20111116
  7. PANTOPRAZOLE [Concomitant]
     Indication: PROPHYLAXIS
     Dosage: 40 MG, 1X/DAY:QD
     Route: 042
     Dates: start: 20111101

REACTIONS (1)
  - HYPOGLYCAEMIA [None]
